FAERS Safety Report 18301985 (Version 6)
Quarter: 2021Q4

REPORT INFORMATION
  Report Type: Spontaneous
  Country: US (occurrence: US)
  Receive Date: 20200923
  Receipt Date: 20211209
  Transmission Date: 20220303
  Serious: Yes (Other)
  Sender: FDA-Public Use
  Company Number: US-JNJFOC-20200928525

PATIENT
  Age: 7 Decade
  Sex: Female

DRUGS (6)
  1. ELMIRON [Suspect]
     Active Substance: PENTOSAN POLYSULFATE SODIUM
     Indication: Cystitis interstitial
     Route: 048
     Dates: start: 200108
  2. ELMIRON [Suspect]
     Active Substance: PENTOSAN POLYSULFATE SODIUM
     Route: 048
     Dates: start: 20041123, end: 2012
  3. ELMIRON [Suspect]
     Active Substance: PENTOSAN POLYSULFATE SODIUM
     Route: 048
     Dates: end: 20150218
  4. ELMIRON [Suspect]
     Active Substance: PENTOSAN POLYSULFATE SODIUM
     Route: 048
     Dates: start: 20160114, end: 20201127
  5. ATENOLOL [Concomitant]
     Active Substance: ATENOLOL
     Indication: Hypertension
     Dates: start: 1996
  6. IMIPRAMINE [Concomitant]
     Active Substance: IMIPRAMINE
     Indication: Cystitis interstitial
     Dates: start: 1996

REACTIONS (4)
  - Macular degeneration [Unknown]
  - Retinal dystrophy [Not Recovered/Not Resolved]
  - Vitreous detachment [Unknown]
  - Macular pigmentation [Recovered/Resolved]

NARRATIVE: CASE EVENT DATE: 20170101
